FAERS Safety Report 8300177-1 (Version None)
Quarter: 2012Q2

REPORT INFORMATION
  Report Type: 
  Country: None (occurrence: None)
  Receive Date: 20120417
  Receipt Date: 20110727
  Transmission Date: 20120825
  Serious: Yes (Hospitalization)
  Sender: FDA-Public Use
  Company Number: GB-023348

PATIENT
  Age: 64 Year
  Sex: Female

DRUGS (5)
  1. ALBUTEROL [Concomitant]
  2. RITUXIMAB [Suspect]
     Dosage: 950MG PER INJECTION, INTRAVENOUS (NOT OTHERWISE SPECIFIED)
     Route: 042
  3. AMLODIPINE [Concomitant]
  4. FLUTICASONE FUROATE [Concomitant]
  5. CHLORAMBUCIL [Suspect]
     Indication: CHRONIC LYMPHOCYTIC LEUKAEMIA
     Dosage: TABLET 20 MG, 20 MG PER DAY, ORAL
     Route: 048
     Dates: start: 20080702

REACTIONS (1)
  - CELLULITIS [None]
